FAERS Safety Report 24855088 (Version 5)
Quarter: 2025Q3

REPORT INFORMATION
  Report Type: Report from Study
  Country: US (occurrence: US)
  Receive Date: 20250117
  Receipt Date: 20250731
  Transmission Date: 20251021
  Serious: Yes (Hospitalization, Other)
  Sender: MERCK SHARP & DOHME LLC
  Company Number: US-009507513-2501USA003993

PATIENT
  Age: 70 Year
  Sex: Female
  Weight: 60.771 kg

DRUGS (35)
  1. WINREVAIR [Suspect]
     Active Substance: SOTATERCEPT-CSRK
     Indication: Pulmonary arterial hypertension
  2. WINREVAIR [Suspect]
     Active Substance: SOTATERCEPT-CSRK
  3. WINREVAIR [Suspect]
     Active Substance: SOTATERCEPT-CSRK
  4. WINREVAIR [Suspect]
     Active Substance: SOTATERCEPT-CSRK
  5. WINREVAIR [Suspect]
     Active Substance: SOTATERCEPT-CSRK
     Indication: Pulmonary arterial hypertension
     Dosage: DOSE DESCRIPTION: 0.8 ML, Q3W, STRENGTH 45 MG?DAILY DOSE: 0.038 ML?REGIMEN DOSE: 0.8 ML
     Route: 058
     Dates: start: 2024, end: 20250128
  6. WINREVAIR [Suspect]
     Active Substance: SOTATERCEPT-CSRK
  7. WINREVAIR [Suspect]
     Active Substance: SOTATERCEPT-CSRK
  8. WINREVAIR [Suspect]
     Active Substance: SOTATERCEPT-CSRK
  9. WINREVAIR [Suspect]
     Active Substance: SOTATERCEPT-CSRK
  10. WINREVAIR [Suspect]
     Active Substance: SOTATERCEPT-CSRK
  11. WINREVAIR [Suspect]
     Active Substance: SOTATERCEPT-CSRK
  12. WINREVAIR [Suspect]
     Active Substance: SOTATERCEPT-CSRK
  13. REMODULIN [Suspect]
     Active Substance: TREPROSTINIL
     Indication: Pulmonary arterial hypertension
     Route: 058
     Dates: start: 20241206
  14. REMODULIN [Suspect]
     Active Substance: TREPROSTINIL
     Indication: Pulmonary arterial hypertension
     Route: 058
     Dates: start: 20150202
  15. PEPCID AC [Concomitant]
     Active Substance: FAMOTIDINE
  16. CYMBALTA [Concomitant]
     Active Substance: DULOXETINE HYDROCHLORIDE
  17. PREDNISONE [Concomitant]
     Active Substance: PREDNISONE
  18. TYLENOL EXTRA STRENGTH [Concomitant]
     Active Substance: ACETAMINOPHEN
  19. SODIUM CHLORIDE [Concomitant]
     Active Substance: SODIUM CHLORIDE
  20. PANTOPRAZOLE SODIUM [Concomitant]
     Active Substance: PANTOPRAZOLE SODIUM
  21. TADALAFIL [Concomitant]
     Active Substance: TADALAFIL
  22. XANAX [Concomitant]
     Active Substance: ALPRAZOLAM
  23. OXYGEN [Concomitant]
     Active Substance: OXYGEN
  24. AMBRISENTAN [Concomitant]
     Active Substance: AMBRISENTAN
  25. LOPERAMIDE [Concomitant]
     Active Substance: LOPERAMIDE
  26. CLARITIN [Concomitant]
     Active Substance: LORATADINE
  27. ASPIRIN [Concomitant]
     Active Substance: ASPIRIN
  28. KETAMINE HYDROCHLORIDE [Concomitant]
     Active Substance: KETAMINE HYDROCHLORIDE
  29. LECITHIN [Concomitant]
     Active Substance: LECITHIN
  30. CLONIDINE [Concomitant]
     Active Substance: CLONIDINE
  31. KETOPROFEN [Concomitant]
     Active Substance: KETOPROFEN
  32. LIDOCAINE HYDROCHLORIDE [Concomitant]
     Active Substance: LIDOCAINE HYDROCHLORIDE
  33. AMITRIPTYLINE HYDROCHLORIDE [Concomitant]
     Active Substance: AMITRIPTYLINE HYDROCHLORIDE
  34. GABAPENTIN [Concomitant]
     Active Substance: GABAPENTIN
  35. POLOXAMER [Concomitant]
     Active Substance: POLOXAMER

REACTIONS (7)
  - Gastrointestinal haemorrhage [Unknown]
  - Asthenia [Unknown]
  - Diarrhoea [Unknown]
  - Rectal haemorrhage [Unknown]
  - Nasal congestion [Unknown]
  - Epistaxis [Unknown]
  - Therapy cessation [Unknown]

NARRATIVE: CASE EVENT DATE: 20250101
